FAERS Safety Report 12234515 (Version 3)
Quarter: 2016Q3

REPORT INFORMATION
  Report Type: Spontaneous
  Country: US (occurrence: US)
  Receive Date: 20160404
  Receipt Date: 20160714
  Transmission Date: 20161109
  Serious: No
  Sender: FDA-Public Use
  Company Number: US-GLAXOSMITHKLINE-US2016041016

PATIENT
  Age: 50 Year
  Sex: Female

DRUGS (6)
  1. LEXAPRO [Concomitant]
     Active Substance: ESCITALOPRAM OXALATE
  2. ENALAPRIL [Concomitant]
     Active Substance: ENALAPRIL
  3. GLYBURIDE. [Concomitant]
     Active Substance: GLYBURIDE
  4. SYNTHROID [Concomitant]
     Active Substance: LEVOTHYROXINE SODIUM
  5. TANZEUM [Suspect]
     Active Substance: ALBIGLUTIDE
     Indication: DIABETES MELLITUS
     Dosage: 30 MG, WE
     Route: 042
     Dates: start: 201602
  6. METFORMIN [Concomitant]
     Active Substance: METFORMIN HYDROCHLORIDE

REACTIONS (4)
  - Injury associated with device [Recovered/Resolved]
  - Circumstance or information capable of leading to medication error [Unknown]
  - Device use error [Unknown]
  - Product quality issue [Unknown]

NARRATIVE: CASE EVENT DATE: 201602
